FAERS Safety Report 5908744-7 (Version None)
Quarter: 2008Q4

REPORT INFORMATION
  Report Type: 
  Country: None (occurrence: None)
  Receive Date: 20081006
  Receipt Date: 20080922
  Transmission Date: 20090506
  Serious: Yes (Other)
  Sender: FDA-Public Use
  Company Number: B0539993A

PATIENT
  Age: 28 Year
  Sex: Female

DRUGS (3)
  1. COMBIVIR [Suspect]
     Indication: HIV INFECTION
     Dosage: 900MG PER DAY
     Route: 048
     Dates: start: 20070315, end: 20070323
  2. TRUVADA [Suspect]
     Indication: HIV INFECTION
     Dosage: 500MG PER DAY
     Route: 048
     Dates: start: 20060413
  3. KALETRA [Suspect]
     Indication: HIV INFECTION
     Dosage: 1000MG PER DAY
     Route: 048
     Dates: start: 20060413

REACTIONS (2)
  - ABORTION SPONTANEOUS [None]
  - DRUG EXPOSURE DURING PREGNANCY [None]
